FAERS Safety Report 5728461-6 (Version None)
Quarter: 2008Q2

REPORT INFORMATION
  Report Type: 
  Country: None (occurrence: None)
  Receive Date: 20080430
  Receipt Date: 20080417
  Transmission Date: 20081010
  Serious: Yes (Hospitalization)
  Sender: FDA-Public Use
  Company Number: S08-GER-01562-01

PATIENT
  Sex: Male

DRUGS (3)
  1. ESCITALOPRAM [Suspect]
     Indication: ANXIETY
     Dosage: 10 MG BID PO
     Route: 048
  2. SARTAN (LOSARTAN) [Concomitant]
  3. ST. JOHN'S WORT ^HERRON^ (HYPERICUM PERFORATUM) [Concomitant]

REACTIONS (1)
  - HYPERTENSIVE CRISIS [None]
